FAERS Safety Report 21259058 (Version 1)
Quarter: 2022Q3

REPORT INFORMATION
  Report Type: Spontaneous
  Country: US (occurrence: US)
  Receive Date: 20220826
  Receipt Date: 20220826
  Transmission Date: 20221026
  Serious: Yes (Hospitalization, Other)
  Sender: FDA-Public Use
  Company Number: US-PFIZER INC-202201087986

PATIENT
  Age: 49 Year
  Sex: Female
  Weight: 107 kg

DRUGS (3)
  1. XELJANZ XR [Suspect]
     Active Substance: TOFACITINIB CITRATE
     Dosage: UNK
     Dates: end: 202206
  2. XELJANZ XR [Suspect]
     Active Substance: TOFACITINIB CITRATE
     Dosage: UNK
     Dates: start: 202207
  3. HUMIRA [Suspect]
     Active Substance: ADALIMUMAB
     Dosage: UNK
     Route: 058

REACTIONS (11)
  - Loss of consciousness [Unknown]
  - Loss of consciousness [Unknown]
  - Rheumatoid arthritis [Unknown]
  - COVID-19 [Recovered/Resolved]
  - Feeling abnormal [Unknown]
  - Memory impairment [Not Recovered/Not Resolved]
  - Neuralgia [Unknown]
  - Spinal osteoarthritis [Unknown]
  - Fibromyalgia [Unknown]
  - Hand deformity [Unknown]
  - Fear of injection [Unknown]

NARRATIVE: CASE EVENT DATE: 20220101
